FAERS Safety Report 8082132-2 (Version None)
Quarter: 2012Q1

REPORT INFORMATION
  Report Type: 
  Country: None (occurrence: None)
  Receive Date: 20120127
  Receipt Date: 20110207
  Transmission Date: 20120608
  Serious: No
  Sender: FDA-Public Use
  Company Number: US-ABBOTT-11P-163-0704465-00

PATIENT
  Sex: Male
  Weight: 90.8 kg

DRUGS (3)
  1. DICYCLOMINE [Concomitant]
     Indication: CROHN'S DISEASE
  2. HUMIRA [Suspect]
     Indication: CROHN'S DISEASE
     Dates: start: 20100101
  3. PREDNISONE TAB [Concomitant]
     Indication: CROHN'S DISEASE

REACTIONS (3)
  - WEIGHT INCREASED [None]
  - INJECTION SITE HAEMATOMA [None]
  - INJECTION SITE NODULE [None]
